FAERS Safety Report 11329419 (Version 1)
Quarter: 2015Q3

REPORT INFORMATION
  Report Type: Spontaneous
  Country: US (occurrence: None)
  Receive Date: 20150730
  Receipt Date: 20150730
  Transmission Date: 20151125
  Serious: Yes (Other)
  Sender: FDA-Public Use
  Company Number: None

PATIENT
  Age: 61 Year
  Sex: Female

DRUGS (1)
  1. CYMBALTA [Suspect]
     Active Substance: DULOXETINE HYDROCHLORIDE
     Indication: DEPRESSION
     Dosage: #60 1 BID ORAL
     Route: 048
     Dates: start: 201312, end: 201405

REACTIONS (2)
  - Insomnia [None]
  - Ear disorder [None]

NARRATIVE: CASE EVENT DATE: 201405
